FAERS Safety Report 5678157-4 (Version None)
Quarter: 2008Q1

REPORT INFORMATION
  Report Type: 
  Country: None (occurrence: None)
  Receive Date: 20080319
  Receipt Date: 20080306
  Transmission Date: 20080703
  Serious: Yes (Hospitalization)
  Sender: FDA-Public Use
  Company Number: 8030758

PATIENT
  Sex: Male

DRUGS (2)
  1. KEPPRA [Suspect]
  2. FUROSEMIDE [Concomitant]

REACTIONS (2)
  - DRUG LEVEL DECREASED [None]
  - INJURY [None]
